FAERS Safety Report 25888022 (Version 2)
Quarter: 2025Q4

REPORT INFORMATION
  Report Type: Spontaneous
  Country: US (occurrence: US)
  Receive Date: 20251007
  Receipt Date: 20251105
  Transmission Date: 20260119
  Serious: Yes (Other)
  Sender: ROCHE
  Company Number: US-ROCHE-10000397947

PATIENT
  Age: 66 Year
  Sex: Female

DRUGS (5)
  1. HERCEPTIN [Suspect]
     Active Substance: TRASTUZUMAB
     Indication: Breast cancer
     Dosage: INFUSE 120 MG (2 MG/KG) WEEKLY FOR 52 WEEKS.
     Route: 042
     Dates: start: 20250908
  2. DICLOMINE [DICLOFENAC SODIUM;PARACETAMOL] [Concomitant]
  3. ALBUTEROL [Concomitant]
     Active Substance: ALBUTEROL
  4. DULOXETINE [Concomitant]
     Active Substance: DULOXETINE
     Dates: start: 20250421
  5. LETROZOLE [Concomitant]
     Active Substance: LETROZOLE

REACTIONS (8)
  - Feeling cold [Unknown]
  - Chills [Unknown]
  - Syncope [Unknown]
  - Dehydration [Unknown]
  - Lactic acidosis [Unknown]
  - Hypoglycaemia [Unknown]
  - Leukocytosis [Unknown]
  - Sinus tachycardia [Unknown]
